FAERS Safety Report 23755198 (Version 2)
Quarter: 2024Q2

REPORT INFORMATION
  Report Type: Report from Study
  Country: RU (occurrence: RU)
  Receive Date: 20240418
  Receipt Date: 20240429
  Transmission Date: 20240716
  Serious: Yes (Other)
  Sender: FDA-Public Use
  Company Number: RU-002147023-NVSC2024RU081789

PATIENT
  Sex: Male

DRUGS (2)
  1. SECUKINUMAB [Suspect]
     Active Substance: SECUKINUMAB
     Indication: Juvenile idiopathic arthritis
     Dosage: 150 MG, QW (INITIAL DOSES ON WEEKS 0, 1, 2, 3 AND 4, SUBSEQUENTLY AS MONTHLY MAINTENANCE DOSES START
     Route: 058
     Dates: start: 202205
  2. SECUKINUMAB [Suspect]
     Active Substance: SECUKINUMAB
     Dosage: (NEXT DOSE)
     Route: 058
     Dates: start: 20220922

REACTIONS (3)
  - Varicella [Recovered/Resolved]
  - Blister [Unknown]
  - Product use issue [Unknown]

NARRATIVE: CASE EVENT DATE: 20220501
